FAERS Safety Report 8943434 (Version 3)
Quarter: 2013Q4

REPORT INFORMATION
  Report Type: Report from Study
  Country: NL (occurrence: NL)
  Receive Date: 20121204
  Receipt Date: 20131119
  Transmission Date: 20140711
  Serious: Yes (Death, Other)
  Sender: FDA-Public Use
  Company Number: PHHY2012NL110637

PATIENT
  Age: 80 Year
  Sex: Male

DRUGS (7)
  1. ZOMETA [Suspect]
     Indication: PROSTATE CANCER METASTATIC
     Dosage: 4 MG / 100 ML ONCE PER 42 DAYS
     Route: 042
  2. ZOMETA [Suspect]
     Dosage: 4 MG / 100 ML ONCE PER 42 DAYS
     Route: 042
     Dates: start: 20110912
  3. ZOMETA [Suspect]
     Dosage: 4 MG / 100 ML ONCE PER 42 DAYS
     Route: 042
     Dates: start: 20121019
  4. ZOMETA [Suspect]
     Dosage: 4 MG / 100 ML ONCE PER 42 DAYS
     Route: 042
     Dates: start: 20121203
  5. PREDNISOLONE [Concomitant]
     Dosage: UNK UKN, UNK
  6. ESOMEPRAZOLE [Concomitant]
     Dosage: UNK UKN, UNK
  7. OXYCONTIN [Concomitant]
     Dosage: UNK UKN, UNK

REACTIONS (5)
  - Terminal state [Fatal]
  - Prostate cancer metastatic [Fatal]
  - General physical health deterioration [Unknown]
  - Muscular weakness [Not Recovered/Not Resolved]
  - Pain [Not Recovered/Not Resolved]
